FAERS Safety Report 8004819-X (Version None)
Quarter: 2011Q4

REPORT INFORMATION
  Report Type: 
  Country: None (occurrence: None)
  Receive Date: 20111223
  Receipt Date: 20111220
  Transmission Date: 20120403
  Serious: Yes (Life-Threatening, Hospitalization, Other)
  Sender: FDA-Public Use
  Company Number: US-BRISTOL-MYERS SQUIBB COMPANY-16306888

PATIENT
  Age: 73 Year
  Sex: Female
  Weight: 57 kg

DRUGS (9)
  1. TORSEMIDE [Concomitant]
  2. CISPLATIN [Suspect]
     Dosage: JUL-11 AND AUG-11; RECEIVED ALONG WITH SECOND CETUXIMAB INFUSION.
  3. ASPIRIN [Concomitant]
  4. ERBITUX [Suspect]
     Indication: HEAD AND NECK CANCER
     Dosage: RECENT TREATMENT ON 16-DEC-11.
     Dates: start: 20111101
  5. BENADRYL [Concomitant]
     Indication: PREMEDICATION
  6. SYNTHROID [Concomitant]
  7. THERAGRAN-M [Concomitant]
  8. TOPROL-XL [Concomitant]
  9. WARFARIN [Concomitant]
     Dosage: 4MG ONCE DAILY.

REACTIONS (13)
  - PYREXIA [None]
  - PAIN IN EXTREMITY [None]
  - RASH PUSTULAR [None]
  - STOMATITIS [None]
  - NASOPHARYNGITIS [None]
  - ACNE [None]
  - LOSS OF CONSCIOUSNESS [None]
  - DYSPNOEA [None]
  - WEIGHT DECREASED [None]
  - RASH PRURITIC [None]
  - ARTHRITIS [None]
  - MALAISE [None]
  - BLISTER INFECTED [None]
